FAERS Safety Report 6569901-2 (Version None)
Quarter: 2010Q1

REPORT INFORMATION
  Report Type: 
  Country: None (occurrence: None)
  Receive Date: 20100204
  Receipt Date: 20100128
  Transmission Date: 20100710
  Serious: Yes (Other)
  Sender: FDA-Public Use
  Company Number: PHEH2009US16018

PATIENT
  Sex: Female
  Weight: 58.6 kg

DRUGS (14)
  1. EXJADE [Suspect]
     Indication: MYELODYSPLASTIC SYNDROME
     Dosage: UNK
     Route: 048
     Dates: start: 20080625
  2. EXJADE [Suspect]
     Indication: SIDEROBLASTIC ANAEMIA
     Dosage: UNK
     Route: 048
     Dates: end: 20090401
  3. EXJADE [Suspect]
     Indication: IRON OVERLOAD
     Dosage: UNK
     Dates: start: 20090601
  4. EXJADE [Suspect]
     Dosage: 1500 MG, QD
     Route: 048
     Dates: start: 20090929, end: 20091101
  5. PAXIL [Concomitant]
     Dosage: 20 MG DAILY
     Route: 048
  6. PREDNISONE [Concomitant]
     Dosage: 5 MG DAILY
     Route: 048
  7. DESFERAL [Concomitant]
     Dosage: 150 MG DAILY
     Route: 048
  8. VITAMIN E [Concomitant]
     Dosage: 400 IU DAILY
     Route: 048
  9. LASIX [Concomitant]
     Dosage: 40 MG DAILY
     Route: 048
  10. TRIAMTEREN-H [Concomitant]
     Dosage: 37.5-25 MG
     Route: 048
  11. METOPROLOL TARTRATE [Concomitant]
     Dosage: 25 MG
     Route: 048
  12. LEVOTHYROXINE SODIUM [Concomitant]
     Dosage: 150 MCG DAILY
     Route: 048
  13. PRILOSEC [Concomitant]
     Dosage: 20 MG DAILY
     Route: 048
  14. VITAMIN D [Concomitant]
     Dosage: 400 IU DAILY

REACTIONS (3)
  - BLOOD CREATININE INCREASED [None]
  - LYMPHADENOPATHY [None]
  - SERUM FERRITIN INCREASED [None]
